FAERS Safety Report 19612449 (Version 3)
Quarter: 2022Q1

REPORT INFORMATION
  Report Type: Spontaneous
  Country: CL (occurrence: CL)
  Receive Date: 20210726
  Receipt Date: 20220113
  Transmission Date: 20220424
  Serious: Yes (Death, Life-Threatening, Other)
  Sender: FDA-Public Use
  Company Number: CL-BIOGEN-2021BI01033175

PATIENT
  Age: 1 Year
  Sex: Male

DRUGS (1)
  1. SPINRAZA [Suspect]
     Active Substance: NUSINERSEN
     Indication: Spinal muscular atrophy
     Dosage: MAINTENANCE DOSE
     Route: 037
     Dates: start: 20200110, end: 20210702

REACTIONS (2)
  - Cardio-respiratory arrest [Fatal]
  - Device dislocation [Unknown]

NARRATIVE: CASE EVENT DATE: 20210715
